FAERS Safety Report 24941959 (Version 1)
Quarter: 2025Q1

REPORT INFORMATION
  Report Type: Report from Study
  Country: US (occurrence: US)
  Receive Date: 20250207
  Receipt Date: 20250207
  Transmission Date: 20250409
  Serious: No
  Sender: ACADIA PHARMACEUTICALS
  Company Number: US-ACADIA PHARMACEUTICALS INC.-ACA-2025-PIM-000822

PATIENT
  Age: 82 Year
  Sex: Female

DRUGS (5)
  1. NUPLAZID [Suspect]
     Active Substance: PIMAVANSERIN TARTRATE
     Indication: Parkinson^s disease
     Dosage: 10 MILLIGRAM, QD
     Route: 048
     Dates: start: 20241226, end: 20250103
  2. DULOXETINE [Concomitant]
     Active Substance: DULOXETINE
  3. ELIQUIS [Concomitant]
     Active Substance: APIXABAN
  4. RYTARY [Concomitant]
     Active Substance: CARBIDOPA\LEVODOPA
  5. MINERALS\VITAMINS [Concomitant]
     Active Substance: MINERALS\VITAMINS

REACTIONS (3)
  - Sleep disorder [Not Recovered/Not Resolved]
  - Nightmare [Not Recovered/Not Resolved]
  - Psychiatric care [Not Recovered/Not Resolved]

NARRATIVE: CASE EVENT DATE: 20250103
